FAERS Safety Report 9979343 (Version 1)
Quarter: 2014Q1

REPORT INFORMATION
  Report Type: Report from Study
  Country: US (occurrence: US)
  Receive Date: 20140306
  Receipt Date: 20140306
  Transmission Date: 20141002
  Serious: No
  Sender: FDA-Public Use
  Company Number: US-ABBVIE-13P-163-1171041-00

PATIENT
  Age: 65 Year
  Sex: Female

DRUGS (7)
  1. HUMIRA [Suspect]
     Indication: RHEUMATOID ARTHRITIS
     Dates: start: 20100126, end: 201308
  2. HUMIRA [Suspect]
  3. METHOTREXATE [Concomitant]
     Indication: RHEUMATOID ARTHRITIS
     Dosage: 2.5 MG, 10 PILLS WEEKLY
  4. LISINOPRIL [Concomitant]
     Indication: BLOOD PRESSURE ABNORMAL
     Dosage: 10 MG DAILY
  5. ATIVAN [Concomitant]
     Indication: ANXIETY
  6. PRAVACHOL [Concomitant]
     Indication: BLOOD CHOLESTEROL ABNORMAL
     Dosage: 20 MG DAILY
  7. NEXIUM [Concomitant]
     Indication: DYSPEPSIA
     Dosage: 20 MG DAILY

REACTIONS (7)
  - Rectal haemorrhage [Unknown]
  - Rectal discharge [Unknown]
  - Cough [Unknown]
  - Rheumatoid arthritis [Unknown]
  - Constipation [Unknown]
  - Gastritis [Unknown]
  - Large intestine polyp [Unknown]
